FAERS Safety Report 5570827-1 (Version None)
Quarter: 2007Q4

REPORT INFORMATION
  Report Type: 
  Country: None (occurrence: None)
  Receive Date: 20071221
  Receipt Date: 20071213
  Transmission Date: 20080405
  Serious: Yes (Hospitalization)
  Sender: FDA-Public Use
  Company Number: CA-ELI_LILLY_AND_COMPANY-CA200712003300

PATIENT
  Age: 73 Year
  Sex: Female

DRUGS (12)
  1. FORTEO [Suspect]
     Indication: OSTEOPOROSIS
     Dosage: 20 UG, DAILY (1/D)
     Route: 058
     Dates: start: 20060726
  2. EFFEXOR [Concomitant]
  3. LIPITOR [Concomitant]
  4. ACETAMINOPHEN [Concomitant]
  5. BROMOCRIPTINE MESYLATE [Concomitant]
  6. ATENOLOL [Concomitant]
  7. TIAZAC [Concomitant]
  8. SYNTHROID [Concomitant]
  9. ALTACE [Concomitant]
  10. RABEPRAZOLE SODIUM [Concomitant]
  11. FLORESTOR [Concomitant]
  12. MULTIVITAMINS, COMBINATIONS [Concomitant]

REACTIONS (6)
  - CLOSTRIDIAL INFECTION [None]
  - CLOSTRIDIUM DIFFICILE COLITIS [None]
  - FALL [None]
  - HAEMORRHAGE [None]
  - HYPERTENSION [None]
  - TRANSIENT ISCHAEMIC ATTACK [None]
